FAERS Safety Report 9517522 (Version 1)
Quarter: 2013Q3

REPORT INFORMATION
  Report Type: Report from Study
  Country: US (occurrence: US)
  Receive Date: 20130911
  Receipt Date: 20130911
  Transmission Date: 20140515
  Serious: Yes (Other)
  Sender: FDA-Public Use
  Company Number: US-BAXTER-2013BAX035952

PATIENT
  Sex: Male

DRUGS (1)
  1. FEIBA [Suspect]
     Indication: HAEMOPHILIA
     Route: 065

REACTIONS (1)
  - Haemorrhagic stroke [Unknown]
